FAERS Safety Report 8068994-3 (Version None)
Quarter: 2012Q1

REPORT INFORMATION
  Report Type: 
  Country: None (occurrence: None)
  Receive Date: 20120118
  Receipt Date: 20120113
  Transmission Date: 20120608
  Serious: Yes (Hospitalization, Other)
  Sender: FDA-Public Use
  Company Number: 2011SP058767

PATIENT
  Age: 46 Year
  Sex: Female
  Weight: 84.2 kg

DRUGS (4)
  1. SYCREST (ASENAPINE /05706901/) [Suspect]
     Indication: PSYCHOTIC DISORDER
     Dates: start: 20111207, end: 20111207
  2. SYCREST (ASENAPINE /05706901/) [Suspect]
     Indication: MANIA
     Dates: start: 20111207, end: 20111207
  3. SYCREST (ASENAPINE /05706901/) [Suspect]
     Indication: PSYCHOTIC DISORDER
     Dates: start: 20111206, end: 20111206
  4. SYCREST (ASENAPINE /05706901/) [Suspect]
     Indication: MANIA
     Dates: start: 20111206, end: 20111206

REACTIONS (3)
  - GLOSSOPHARYNGEAL NERVE DISORDER [None]
  - OROPHARYNGEAL SPASM [None]
  - MUSCLE SPASMS [None]
